FAERS Safety Report 17599003 (Version 1)
Quarter: 2020Q1

REPORT INFORMATION
  Report Type: Spontaneous
  Country: AE (occurrence: AE)
  Receive Date: 20200330
  Receipt Date: 20200330
  Transmission Date: 20200409
  Serious: Yes (Other)
  Sender: FDA-Public Use
  Company Number: AE-SA-2020SA071235

PATIENT
  Age: 24 Year
  Sex: Female

DRUGS (2)
  1. ALEMTUZUMAB [Suspect]
     Active Substance: ALEMTUZUMAB
     Indication: RELAPSING-REMITTING MULTIPLE SCLEROSIS
     Dosage: UNK
     Dates: start: 201702, end: 201702
  2. ALEMTUZUMAB [Suspect]
     Active Substance: ALEMTUZUMAB
     Dosage: UNK
     Dates: start: 201803, end: 201803

REACTIONS (5)
  - Confusional state [Recovering/Resolving]
  - Central nervous system inflammation [Recovering/Resolving]
  - Pseudobulbar palsy [Recovering/Resolving]
  - Central nervous system lesion [Recovering/Resolving]
  - Lymphocytosis [Recovering/Resolving]
